FAERS Safety Report 7000992-0 (Version None)
Quarter: 2010Q3

REPORT INFORMATION
  Report Type: 
  Country: None (occurrence: None)
  Receive Date: 20100920
  Receipt Date: 20071119
  Transmission Date: 20110219
  Serious: Yes (Other)
  Sender: FDA-Public Use
  Company Number: US-ASTRAZENECA-2006UW11271

PATIENT
  Age: 321 Month
  Sex: Male
  Weight: 137.4 kg

DRUGS (4)
  1. SEROQUEL [Suspect]
     Indication: BIPOLAR DISORDER
     Dosage: 100-600 MG
     Route: 048
     Dates: start: 20051201
  2. SEROQUEL [Suspect]
     Indication: DEPRESSION
     Dosage: 100-600 MG
     Route: 048
     Dates: start: 20051201
  3. SEROQUEL [Suspect]
     Indication: ANXIETY
     Dosage: 100-600 MG
     Route: 048
     Dates: start: 20051201
  4. DEPAKOTE [Concomitant]
     Route: 048
     Dates: start: 20051201

REACTIONS (4)
  - BLOOD CHOLESTEROL INCREASED [None]
  - DIABETES MELLITUS [None]
  - DIABETIC KETOACIDOSIS [None]
  - OBESITY [None]
